FAERS Safety Report 6496220-5 (Version None)
Quarter: 2009Q4

REPORT INFORMATION
  Report Type: 
  Country: None (occurrence: None)
  Receive Date: 20091214
  Receipt Date: 20091027
  Transmission Date: 20100525
  Serious: No
  Sender: FDA-Public Use
  Company Number: US-BRISTOL-MYERS SQUIBB COMPANY-14832299

PATIENT
  Age: 70 Year
  Sex: Female
  Weight: 63 kg

DRUGS (14)
  1. ABILIFY [Suspect]
     Indication: BIPOLAR DISORDER
     Dates: start: 20090901
  2. PREMARIN [Concomitant]
  3. AMLODIPINE [Concomitant]
  4. PRENATAL [Concomitant]
  5. GABAPENTIN [Concomitant]
  6. CYCLOBENZAPRINE [Concomitant]
  7. ARICEPT [Concomitant]
  8. TRAZODONE HCL [Concomitant]
  9. NAMENDA [Concomitant]
  10. MELOXICAM [Concomitant]
  11. VITAMIN B COMPLEX CAP [Concomitant]
  12. ASCORBIC ACID [Concomitant]
  13. VITAMIN E [Concomitant]
  14. VITAMIN D [Concomitant]

REACTIONS (1)
  - RENAL DISORDER [None]
